FAERS Safety Report 13648260 (Version 3)
Quarter: 2017Q3

REPORT INFORMATION
  Report Type: Spontaneous
  Country: US (occurrence: US)
  Receive Date: 20170613
  Receipt Date: 20170803
  Transmission Date: 20171127
  Serious: Yes (Hospitalization)
  Sender: FDA-Public Use
  Company Number: US-PFIZER INC-2017256412

PATIENT
  Age: 72 Year
  Sex: Male
  Weight: 90.27 kg

DRUGS (17)
  1. LYRICA [Suspect]
     Active Substance: PREGABALIN
     Dosage: 150 MG, UNK
     Dates: start: 201701
  2. VITAMIN C [Concomitant]
     Active Substance: ASCORBIC ACID
     Dosage: 1000 MG, DAILY
  3. AZELASTINE W/FLUTICASONE [Concomitant]
     Indication: NASAL CONGESTION
     Dosage: AS NEEDED [AZELASTINE: 137 MCG]/ [FLUTICASONE: 50 MCG] [1 NASAL SPRAY P.R.N.]
  4. HYDROCODONE/ACETAMINOPHEN [Concomitant]
     Active Substance: ACETAMINOPHEN\HYDROCODONE
     Indication: PAIN
     Dosage: AS NEEDED [HYDROCODONE 5MG/ACETAMINOPHEN325MG], [EVERY 6 HOURS P.R.N]
  5. PRAMIPEXOLE HCL [Concomitant]
     Active Substance: PRAMIPEXOLE
     Dosage: 0.125 MG, 3X/DAY
  6. LYRICA [Suspect]
     Active Substance: PREGABALIN
     Dosage: UNK
     Dates: start: 201608
  7. VITAMIN B12 [Concomitant]
     Active Substance: CYANOCOBALAMIN
     Dosage: 1000 UG, MONTHLY
     Route: 030
  8. HYDROCODONE/ACETAMINOPHEN [Concomitant]
     Active Substance: ACETAMINOPHEN\HYDROCODONE
     Indication: DISCOMFORT
  9. TERAZOSIN [Concomitant]
     Active Substance: TERAZOSIN\TERAZOSIN HYDROCHLORIDE
     Dosage: 5 MG, 1X/DAY [AT BEDTIME]
  10. LEVEMIR [Concomitant]
     Active Substance: INSULIN DETEMIR
     Dosage: 15 IU, 1X/DAY, [DAILY AT BEDTIME]
  11. ASPIRIN 81 [Concomitant]
     Active Substance: ASPIRIN
     Dosage: 81 MG, DAILY
  12. VITAMIN D3 [Concomitant]
     Active Substance: CHOLECALCIFEROL
     Dosage: 5000 IU, DAILY
  13. LYRICA [Suspect]
     Active Substance: PREGABALIN
     Dosage: 75 MG, 3X/DAY (3 PILLS OF THE 75MG
     Dates: end: 20170606
  14. AMIODARONE HCL [Concomitant]
     Active Substance: AMIODARONE HYDROCHLORIDE
     Dosage: 200 MG, DAILY
  15. COREG [Concomitant]
     Active Substance: CARVEDILOL
     Dosage: 25 MG, 2X/DAY
  16. LYRICA [Suspect]
     Active Substance: PREGABALIN
     Dosage: UNK
     Dates: start: 20140317
  17. HYTRIN [Concomitant]
     Active Substance: TERAZOSIN HYDROCHLORIDE
     Dosage: UNK

REACTIONS (8)
  - Tendon injury [Unknown]
  - Fall [Unknown]
  - Rhabdomyolysis [Unknown]
  - Acute kidney injury [Recovering/Resolving]
  - Hypoaesthesia [Unknown]
  - Condition aggravated [Not Recovered/Not Resolved]
  - Grip strength decreased [Not Recovered/Not Resolved]
  - Muscular weakness [Recovering/Resolving]

NARRATIVE: CASE EVENT DATE: 2016
